FAERS Safety Report 8462678-5 (Version None)
Quarter: 2012Q2

REPORT INFORMATION
  Report Type: 
  Country: None (occurrence: None)
  Receive Date: 20120625
  Receipt Date: 20120621
  Transmission Date: 20120825
  Serious: Yes (Other)
  Sender: FDA-Public Use
  Company Number: DE-ROCHE-1064238

PATIENT
  Sex: Male

DRUGS (3)
  1. OXALIPLATIN [Concomitant]
     Dates: end: 20120411
  2. FLUOROURACIL [Concomitant]
  3. AVASTIN [Suspect]
     Indication: PRODUCT USED FOR UNKNOWN INDICATION
     Dates: start: 20110727

REACTIONS (5)
  - CHEST PAIN [None]
  - BACK PAIN [None]
  - DISSEMINATED INTRAVASCULAR COAGULATION [None]
  - LIVER FUNCTION TEST ABNORMAL [None]
  - HAEMOLYSIS [None]
